FAERS Safety Report 4921932-1 (Version None)
Quarter: 2006Q1

REPORT INFORMATION
  Report Type: 
  Country: None (occurrence: None)
  Receive Date: 20060224
  Receipt Date: 20051027
  Transmission Date: 20060701
  Serious: No
  Sender: FDA-Public Use
  Company Number: US-BRISTOL-MYERS SQUIBB COMPANY-13226709

PATIENT
  Age: 20 Year
  Sex: Female
  Weight: 157 kg

DRUGS (1)
  1. MONISTAT 1 COMBINATION PACK [Suspect]
     Indication: VULVOVAGINAL MYCOTIC INFECTION
     Route: 067
     Dates: start: 20051025, end: 20051025

REACTIONS (3)
  - GENITAL PRURITUS FEMALE [None]
  - GENITAL RASH [None]
  - VULVOVAGINAL DISCOMFORT [None]
